FAERS Safety Report 4392717-2 (Version None)
Quarter: 2004Q3

REPORT INFORMATION
  Report Type: 
  Country: None (occurrence: None)
  Receive Date: 20040702
  Receipt Date: 20040324
  Transmission Date: 20050211
  Serious: Yes (Other)
  Sender: FDA-Public Use
  Company Number: 2004UW05696

PATIENT
  Age: 71 Year
  Sex: Female

DRUGS (7)
  1. CRESTOR [Suspect]
     Dosage: 10 MG QD; PO
     Route: 048
     Dates: start: 20040210
  2. WARFARIN SODIUM [Concomitant]
  3. HYDROCHLOROTHIAZIDE [Concomitant]
  4. DITROPAN XL [Concomitant]
  5. AMBIEN [Concomitant]
  6. NAPROXEN [Concomitant]
  7. MULTI-VITAMIN [Concomitant]

REACTIONS (2)
  - ANGIONEUROTIC OEDEMA [None]
  - LIP BLISTER [None]
